FAERS Safety Report 8543996-9 (Version None)
Quarter: 2012Q3

REPORT INFORMATION
  Report Type: 
  Country: None (occurrence: None)
  Receive Date: 20120727
  Receipt Date: 20120717
  Transmission Date: 20120928
  Serious: Yes (Hospitalization)
  Sender: FDA-Public Use
  Company Number: US-BAYER-2011-032095

PATIENT
  Age: 50 Year
  Sex: Female

DRUGS (30)
  1. LEVOTHYROXINE SODIUM [Concomitant]
     Dosage: 500 MCG, MON, WED, FRI AND SAT
  2. FERROUS SULFATE TAB [Concomitant]
     Dosage: 325 MG, TID
     Dates: start: 20120518
  3. PROMETHAZINE [Concomitant]
     Indication: NAUSEA
  4. SUCRALFATE [Concomitant]
     Dosage: 1 G, TID WITH MEALS
     Dates: start: 20120518
  5. CITALOPRAM HYDROBROMIDE [Concomitant]
     Dosage: 40 MG, DAILY
  6. FERROUS SULFATE TAB [Concomitant]
     Dosage: 325 MG, BID
     Dates: start: 20120512
  7. DILAUDID [Concomitant]
     Indication: PAIN
     Dosage: 1 MG,4 TIMES
     Route: 042
     Dates: start: 20080510
  8. POTASSIUM CHLORIDE [Concomitant]
     Dosage: 10 MEQ, BID
     Dates: start: 20120513
  9. ASCORBIC ACID [Concomitant]
     Dosage: 250 MG, UNK
     Route: 048
     Dates: start: 20080512
  10. PROMETHAZINE [Concomitant]
     Indication: VOMITING
     Dosage: 12.5 MG, 1-2 TABLETS Q6H PRN
     Dates: start: 20120518
  11. MORPHINE SULFATE [Concomitant]
     Indication: PAIN
     Dosage: 15 MG, 1-2 TABLETS Q 6H PRN
     Dates: start: 20120518
  12. VANCOMYCIN [Concomitant]
     Dosage: 1500 MG, Q12H
     Route: 042
     Dates: start: 20080510, end: 20080514
  13. PHENERGAN HCL [Concomitant]
     Indication: NAUSEA
     Dosage: 25 MG, UNK
     Route: 042
     Dates: start: 20080511
  14. NOVOLIN R [Concomitant]
     Dosage: PER PROTOCOL Q6H
     Route: 058
     Dates: start: 20080512
  15. MORPHINE SULFATE [Concomitant]
     Dosage: 15 MG, Q2HR
     Route: 048
     Dates: start: 20080510
  16. ZOFRAN [Concomitant]
     Dosage: 4 MG, UNK
     Route: 042
     Dates: start: 20080510
  17. DILAUDID [Concomitant]
     Dosage: 1-2 MG, Q3HR PRN
     Route: 042
  18. ASCORBIC ACID [Concomitant]
     Dosage: 250 MG, TID
     Dates: start: 20120518
  19. METFORMIN HYDROCHLORIDE [Concomitant]
     Dosage: 500 MG, BID
     Route: 048
     Dates: start: 20120518
  20. ZOSYN [Concomitant]
     Dosage: 3.375 MG, Q6H
     Dates: start: 20080510, end: 20080514
  21. PROTONIX [Concomitant]
     Dosage: 40 MG, DAILY
     Route: 042
     Dates: start: 20080511
  22. CEFTAZIDIME [Concomitant]
     Dosage: 2 G, Q8H FOR 8 DAYS
     Dates: start: 20120518
  23. LOVENOX [Concomitant]
     Dosage: 50 MG, UNK
     Dates: start: 20080510
  24. LOPERAMIDE [Concomitant]
     Dosage: AS DIRECTED
  25. METHADONE HYDROCHLORIDE [Concomitant]
     Dosage: 5 MG, Q12H, UNK
  26. PANTOPRAZOLE [Concomitant]
     Dosage: 40 MG, DAILY
  27. CEFTAZIDIME [Concomitant]
     Dosage: UNK
     Dates: start: 20080514, end: 20080518
  28. RED BLOOD CELLS [Concomitant]
     Dosage: 2 UNITS
     Dates: start: 20080513
  29. YAZ [Suspect]
     Indication: DYSFUNCTIONAL UTERINE BLEEDING
     Dosage: UNK
     Dates: start: 20080101, end: 20080601
  30. LEVOTHYROXINE SODIUM [Concomitant]
     Dosage: 400 MCG, TUES, THU, SAT

REACTIONS (3)
  - PAIN [None]
  - PULMONARY EMBOLISM [None]
  - INJURY [None]
